FAERS Safety Report 4789618-4 (Version None)
Quarter: 2005Q4

REPORT INFORMATION
  Report Type: 
  Country: None (occurrence: None)
  Receive Date: 20051004
  Receipt Date: 20050920
  Transmission Date: 20060501
  Serious: Yes (Hospitalization, Other)
  Sender: FDA-Public Use
  Company Number: USA0506101340

PATIENT
  Age: 64 Year
  Sex: Female

DRUGS (4)
  1. FORTEO [Suspect]
     Indication: OSTEOPOROSIS
     Dosage: 20 UG/1 DAY
     Dates: start: 20050622
  2. TRAZODONE HCL [Concomitant]
  3. RESTORIL [Concomitant]
  4. ARAVA [Concomitant]

REACTIONS (11)
  - ABASIA [None]
  - ABNORMAL BEHAVIOUR [None]
  - ASTHENIA [None]
  - BLOOD IRON DECREASED [None]
  - DYSSTASIA [None]
  - INJECTION SITE PAIN [None]
  - INSOMNIA [None]
  - IRON BINDING CAPACITY TOTAL DECREASED [None]
  - PANCYTOPENIA [None]
  - PHARMACEUTICAL PRODUCT COMPLAINT [None]
  - URINARY TRACT INFECTION [None]
